FAERS Safety Report 11938555 (Version 1)
Quarter: 2016Q1

REPORT INFORMATION
  Report Type: Spontaneous
  Country: FR (occurrence: FR)
  Receive Date: 20160122
  Receipt Date: 20160122
  Transmission Date: 20160526
  Serious: Yes (Hospitalization, Other)
  Sender: FDA-Public Use
  Company Number: FR-SUN PHARMACEUTICAL INDUSTRIES LTD-2016R1-109975

PATIENT
  Age: 60 Year
  Sex: Male

DRUGS (3)
  1. ATOVAQUONE. [Suspect]
     Active Substance: ATOVAQUONE
     Indication: PROPHYLAXIS
     Dosage: UNK
     Route: 065
  2. PREDNISONE. [Suspect]
     Active Substance: PREDNISONE
     Indication: IMMUNOSUPPRESSION
     Dosage: 60 MG, DAILY
     Route: 065
  3. CYCLOSPORIN [Suspect]
     Active Substance: CYCLOSPORINE
     Indication: IMMUNOSUPPRESSION
     Dosage: 360 MG, DAILY
     Route: 065

REACTIONS (5)
  - Nocardiosis [Recovering/Resolving]
  - Arthritis [Recovering/Resolving]
  - Pulmonary mass [Recovering/Resolving]
  - Hepatic neoplasm [Recovering/Resolving]
  - Peritoneal disorder [Recovering/Resolving]
